FAERS Safety Report 9142358 (Version 2)
Quarter: 2013Q2

REPORT INFORMATION
  Report Type: Spontaneous
  Country: JP (occurrence: JP)
  Receive Date: 20130306
  Receipt Date: 20130407
  Transmission Date: 20140414
  Serious: Yes (Other)
  Sender: FDA-Public Use
  Company Number: JP-009507513-1303JPN000811

PATIENT
  Age: 59 Year
  Sex: Male

DRUGS (8)
  1. PEGINTRON [Suspect]
     Indication: CHRONIC HEPATITIS C
     Dosage: 120 MICROGRAM, QW
     Route: 058
     Dates: start: 200808
  2. REBETOL [Suspect]
     Indication: CHRONIC HEPATITIS C
     Dosage: 800 MG, PRN
     Route: 048
     Dates: start: 200808
  3. PEGASYS [Suspect]
     Indication: CHRONIC HEPATITIS C
     Dosage: 180 MICROGRAM, UNK
     Route: 058
     Dates: start: 20100109
  4. PEGASYS [Suspect]
     Dosage: UNK
     Route: 058
     Dates: start: 20100324, end: 201103
  5. PEGASYS [Suspect]
     Dosage: UNK
     Route: 058
     Dates: start: 201105, end: 201107
  6. COPEGUS [Suspect]
     Indication: CHRONIC HEPATITIS C
     Dosage: 800 MG, UNK
     Route: 048
     Dates: start: 20100109
  7. COPEGUS [Suspect]
     Dosage: UNK
     Route: 048
     Dates: start: 201010, end: 201103
  8. COPEGUS [Suspect]
     Dosage: UNK
     Route: 048
     Dates: start: 201105, end: 201107

REACTIONS (1)
  - Pancreatitis acute [Unknown]
